FAERS Safety Report 4543032-5 (Version None)
Quarter: 2004Q4

REPORT INFORMATION
  Report Type: 
  Country: None (occurrence: None)
  Receive Date: 20041229
  Receipt Date: 20041006
  Transmission Date: 20050328
  Serious: Yes (Other)
  Sender: FDA-Public Use
  Company Number: A-CH2004-07621

PATIENT
  Age: 74 Year
  Sex: Male
  Weight: 83 kg

DRUGS (7)
  1. TRACLEER [Suspect]
     Indication: PULMONARY HYPERTENSION
     Dosage: 62.5 MG, BID, ORAL : 125 MG, BID ORAL : 62.5 MG, BID, ORAL
     Route: 048
     Dates: start: 20040128, end: 20040224
  2. TRACLEER [Suspect]
     Indication: PULMONARY HYPERTENSION
     Dosage: 62.5 MG, BID, ORAL : 125 MG, BID ORAL : 62.5 MG, BID, ORAL
     Route: 048
     Dates: start: 20040225, end: 20040401
  3. TRACLEER [Suspect]
     Indication: PULMONARY HYPERTENSION
     Dosage: 62.5 MG, BID, ORAL : 125 MG, BID ORAL : 62.5 MG, BID, ORAL
     Route: 048
     Dates: start: 20040402
  4. SIMVASTATIN [Concomitant]
  5. LOSARTAN [Concomitant]
  6. DILTIAZEM [Concomitant]
  7. PHENPROCOUMON [Concomitant]

REACTIONS (4)
  - ALANINE AMINOTRANSFERASE INCREASED [None]
  - ASPARTATE AMINOTRANSFERASE INCREASED [None]
  - BLOOD BILIRUBIN INCREASED [None]
  - LIVER FUNCTION TEST ABNORMAL [None]
